FAERS Safety Report 4339139-8 (Version None)
Quarter: 2004Q2

REPORT INFORMATION
  Report Type: 
  Country: None (occurrence: None)
  Receive Date: 20040414
  Receipt Date: 20040414
  Transmission Date: 20050107
  Serious: Yes (Hospitalization)
  Sender: FDA-Public Use
  Company Number: None

PATIENT
  Age: 7 Year
  Sex: Female

DRUGS (2)
  1. CLODRONATE 1600 MG [Suspect]
     Indication: BREAST CANCER
     Dosage: PO QD
     Route: 048
     Dates: start: 20030605, end: 20040330
  2. PLACEBO [Suspect]

REACTIONS (1)
  - TRANSIENT ISCHAEMIC ATTACK [None]
